FAERS Safety Report 23811117 (Version 1)
Quarter: 2024Q2

REPORT INFORMATION
  Report Type: Spontaneous
  Country: US (occurrence: US)
  Receive Date: 20240502
  Receipt Date: 20240502
  Transmission Date: 20240716
  Serious: Yes (Other)
  Sender: FDA-Public Use
  Company Number: US-SEATTLE GENETICS-2024SGN05014

PATIENT
  Age: 37 Year
  Sex: Female

DRUGS (1)
  1. TIVDAK [Suspect]
     Active Substance: TISOTUMAB VEDOTIN-TFTV
     Indication: Product used for unknown indication
     Route: 065

REACTIONS (11)
  - Intestinal haemorrhage [Recovered/Resolved]
  - Hypokalaemia [Unknown]
  - Oil acne [Recovered/Resolved]
  - Seborrhoea [Unknown]
  - Liver disorder [Unknown]
  - Acne pustular [Recovered/Resolved]
  - Ear haemorrhage [Recovered/Resolved]
  - Blood urine present [Recovered/Resolved]
  - Contusion [Unknown]
  - Erythema [Not Recovered/Not Resolved]
  - Epistaxis [Recovered/Resolved]
